FAERS Safety Report 10050703 (Version 1)
Quarter: 2014Q2

REPORT INFORMATION
  Report Type: Spontaneous
  Country: US (occurrence: US)
  Receive Date: 20140401
  Receipt Date: 20140401
  Transmission Date: 20141212
  Serious: No
  Sender: FDA-Public Use
  Company Number: US-ASTRAZENECA-2013SE66161

PATIENT
  Age: 74 Year
  Sex: Female
  Weight: 81.6 kg

DRUGS (14)
  1. NEXIUM [Suspect]
     Indication: GASTROOESOPHAGEAL REFLUX DISEASE
     Route: 048
     Dates: start: 2008
  2. HYDROCHLOROTHIAZIDE [Suspect]
     Indication: DIURETIC THERAPY
     Route: 048
     Dates: start: 1993
  3. MIRAPEK [Concomitant]
     Indication: RESTLESS LEGS SYNDROME
     Route: 048
     Dates: start: 2009
  4. SYNTHROID [Concomitant]
     Indication: THYROID DISORDER
     Route: 048
     Dates: start: 1998
  5. 1 A DAY MULTIVITAMIN [Concomitant]
     Indication: SUPPLEMENTATION THERAPY
     Dosage: 1 TAB
     Route: 048
  6. ADATAT [Concomitant]
     Indication: BLOOD PRESSURE ABNORMAL
     Route: 048
     Dates: start: 1993
  7. VYTORIN 10/10 [Concomitant]
     Dosage: 1 TAB DAILY
     Route: 048
     Dates: start: 2003
  8. VESICARE [Concomitant]
     Indication: BLADDER DISORDER
     Dosage: DAILY
     Dates: start: 2013
  9. DOXEPIN [Concomitant]
     Indication: SLEEP DISORDER
     Route: 048
     Dates: start: 201308
  10. BONIVA [Concomitant]
     Indication: BONE DENSITY ABNORMAL
     Route: 048
  11. BABY ASPIRIN [Concomitant]
     Route: 048
  12. CALCIUM [Concomitant]
     Indication: SUPPLEMENTATION THERAPY
     Dosage: 1 TAB
  13. ARTHRITIS ADVIL [Concomitant]
     Indication: ARTHRITIS
  14. FISH OIL [Concomitant]
     Indication: SUPPLEMENTATION THERAPY
     Dosage: 1 TAB

REACTIONS (4)
  - Gastrooesophageal reflux disease [Not Recovered/Not Resolved]
  - Restless legs syndrome [Not Recovered/Not Resolved]
  - Urinary incontinence [Not Recovered/Not Resolved]
  - Insomnia [Not Recovered/Not Resolved]
